FAERS Safety Report 7604044-8 (Version None)
Quarter: 2011Q3

REPORT INFORMATION
  Report Type: 
  Country: None (occurrence: None)
  Receive Date: 20110712
  Receipt Date: 20110708
  Transmission Date: 20111222
  Serious: Yes (Other)
  Sender: FDA-Public Use
  Company Number: FR-ROCHE-788714

PATIENT
  Age: 7 Year
  Sex: Female

DRUGS (3)
  1. CLONAZEPAM [Suspect]
     Indication: DEPRESSION
     Dates: start: 20030824, end: 20031002
  2. TRIMEPRAZINE TARTRATE [Suspect]
     Indication: DEPRESSION
     Dates: start: 20030824, end: 20031002
  3. CITALOPRAM HYDROBROMIDE [Suspect]
     Indication: DEPRESSION
     Dates: start: 20030824, end: 20031002

REACTIONS (4)
  - FATIGUE [None]
  - BULIMIA NERVOSA [None]
  - AGGRESSION [None]
  - ABNORMAL BEHAVIOUR [None]
